FAERS Safety Report 6675590-9 (Version None)
Quarter: 2010Q2

REPORT INFORMATION
  Report Type: 
  Country: None (occurrence: None)
  Receive Date: 20100409
  Receipt Date: 20100401
  Transmission Date: 20101027
  Serious: Yes (Hospitalization, Other)
  Sender: FDA-Public Use
  Company Number: PHHY2010IT20441

PATIENT
  Sex: Female

DRUGS (6)
  1. TOLEP [Suspect]
     Dosage: 300 MG (20 TABLETS) AT ONCE
     Route: 048
     Dates: start: 20100214, end: 20100214
  2. EFEXOR /BEL/ [Concomitant]
     Dosage: 37.5 MG/DAY
     Route: 048
  3. HALDOL [Concomitant]
     Dosage: 4 MG/DAY
     Route: 048
  4. SEROQUEL [Concomitant]
     Dosage: 50 MG/DAY
     Route: 048
  5. FELISON [Concomitant]
     Dosage: 15 MG/DAY
     Route: 048
  6. AULIN ^BOEHRINGER MANNHEIM^ [Concomitant]
     Dosage: 100 MG/DAY
     Route: 048

REACTIONS (5)
  - DRUG ABUSE [None]
  - ELECTROCARDIOGRAM QT PROLONGED [None]
  - INCORRECT DOSE ADMINISTERED [None]
  - VERTIGO [None]
  - VOMITING [None]
